FAERS Safety Report 10051068 (Version 1)
Quarter: 2014Q2

REPORT INFORMATION
  Report Type: Spontaneous
  Country: CA (occurrence: CA)
  Receive Date: 20140401
  Receipt Date: 20140401
  Transmission Date: 20141212
  Serious: Yes (Hospitalization)
  Sender: FDA-Public Use
  Company Number: PHHY2014CA035276

PATIENT
  Age: 28 Year
  Sex: Female

DRUGS (9)
  1. OXYTOCIN [Suspect]
     Indication: LABOUR INDUCTION
  2. SALBUTAMOL [Suspect]
     Indication: ASTHMA
  3. FLUTICASONE [Suspect]
     Indication: ASTHMA
  4. CALCIUM [Suspect]
  5. LABETALOL [Suspect]
     Indication: GESTATIONAL HYPERTENSION
  6. FENTANYL [Suspect]
     Indication: LABOUR PAIN
  7. ROPIVACAINE HYDROCHLORIDE [Suspect]
  8. FERROUS SULFATE [Suspect]
     Indication: ANAEMIA
  9. CERVIDIL [Suspect]
     Indication: LABOUR INDUCTION

REACTIONS (5)
  - Hypertension [Unknown]
  - Renal failure chronic [Unknown]
  - Condition aggravated [Unknown]
  - Drug ineffective [Unknown]
  - Maternal exposure during pregnancy [Unknown]
